FAERS Safety Report 4312400-9 (Version None)
Quarter: 2004Q1

REPORT INFORMATION
  Report Type: 
  Country: None (occurrence: None)
  Receive Date: 20040303
  Receipt Date: 20040219
  Transmission Date: 20041129
  Serious: Yes (Hospitalization, Disabling, Other)
  Sender: FDA-Public Use
  Company Number: 001-0945-M0200657

PATIENT
  Age: 44 Year
  Sex: Female
  Weight: 54.4316 kg

DRUGS (28)
  1. NEURONTIN [Suspect]
     Indication: BIPOLAR DISORDER
     Dosage: 1800 MG DAILY, ORAL
     Route: 048
     Dates: start: 19990512, end: 20020401
  2. LAMOTRIGINE [Concomitant]
  3. LITHIUM CARBONATE [Concomitant]
  4. CLONAZEPAM [Concomitant]
  5. METHYLPHENIDATE HCL [Concomitant]
  6. LEVOTHYROXINE SODIUM [Concomitant]
  7. LIOTHYRONINE SODIUM [Concomitant]
  8. SERTRALINE HCL [Concomitant]
  9. PILOCARPINE HYDROCHLORIDE (PILOCARPINE HYDROCHLORIDE) [Concomitant]
  10. METOPROLOL SUCCINATE [Concomitant]
  11. LANSOPRAZOLE [Concomitant]
  12. HYOSCYAMINE SULFATE AND PHENOBARBITAL [Concomitant]
  13. DILTIAZEM HYDROCHLORIDE [Concomitant]
  14. BUPROPION HYDROCHLORIDE [Concomitant]
  15. CELEBREX [Concomitant]
  16. QUETIAPINE FUMARATE (QUETIAPINE FUMARATE) [Concomitant]
  17. METOPROLOL TARTRATE [Concomitant]
  18. CITALOPRAM HYDROBROMIDE (CITALOPRAM HYDROBROMIDE) [Concomitant]
  19. OLANZAPINE [Concomitant]
  20. OMEPRAZOLE [Concomitant]
  21. NASAL PREPARATIONS [Concomitant]
  22. NEFAZODONE HCL [Concomitant]
  23. TOTOLIN (GUAIFENESIN, PHENYLPROPANOLAMINE HYDROCHLORIDE) [Concomitant]
  24. MECLOZINE (MECLOZINE) [Concomitant]
  25. FLUTICASONE PROPIONATE [Concomitant]
  26. TRIMETHOBENZAMIDE HYDROCHLORIDE (TRIMETHOBENZAMIDE HYDROCHLORIDE) [Concomitant]
  27. RESPAIRE-SR-120 (GUAIFENESIN, PSEUDOEPHEDRINE HYDROCHLORIDE) [Concomitant]
  28. RISPERIDONE [Suspect]

REACTIONS (31)
  - AGITATION [None]
  - ANKLE FRACTURE [None]
  - BACTERAEMIA [None]
  - CERVICITIS [None]
  - DECREASED APPETITE [None]
  - DEPRESSION [None]
  - DRUG HYPERSENSITIVITY [None]
  - DYSGEUSIA [None]
  - DYSPHAGIA [None]
  - FACIAL BONES FRACTURE [None]
  - GASTROINTESTINAL DISORDER [None]
  - GASTROINTESTINAL INFECTION [None]
  - HYPERSENSITIVITY [None]
  - HYPERSOMNIA [None]
  - HYPOGLYCAEMIA [None]
  - LABORATORY TEST ABNORMAL [None]
  - MACROGLOSSIA [None]
  - NAUSEA [None]
  - OESOPHAGEAL DISORDER [None]
  - OVARIAN INFECTION [None]
  - OVERDOSE [None]
  - PAIN [None]
  - PITTING OEDEMA [None]
  - ROAD TRAFFIC ACCIDENT [None]
  - SIALOADENITIS [None]
  - SOMATISATION DISORDER [None]
  - SPEECH DISORDER [None]
  - SWOLLEN TONGUE [None]
  - TRAUMATIC BRAIN INJURY [None]
  - UPPER RESPIRATORY TRACT INFECTION [None]
  - VOMITING [None]
